FAERS Safety Report 7958427-7 (Version None)
Quarter: 2011Q4

REPORT INFORMATION
  Report Type: 
  Country: None (occurrence: None)
  Receive Date: 20111205
  Receipt Date: 20111129
  Transmission Date: 20120403
  Serious: Yes (Other)
  Sender: FDA-Public Use
  Company Number: US-SANOFI-AVENTIS-2011SA073397

PATIENT
  Age: 45 Year
  Sex: Female
  Weight: 90.7 kg

DRUGS (2)
  1. LANTUS [Suspect]
     Indication: TYPE 2 DIABETES MELLITUS
     Dosage: 8-15 UNITS ONCE DAILY
     Route: 058
     Dates: start: 20080515
  2. OPTICLICK [Suspect]
     Indication: TYPE 2 DIABETES MELLITUS
     Dates: start: 20080515

REACTIONS (1)
  - LIVER TRANSPLANT [None]
